FAERS Safety Report 7771818-2 (Version None)
Quarter: 2011Q3

REPORT INFORMATION
  Report Type: 
  Country: None (occurrence: None)
  Receive Date: 20110920
  Receipt Date: 20110912
  Transmission Date: 20111222
  Serious: Yes (Other)
  Sender: FDA-Public Use
  Company Number: 1000023761

PATIENT
  Age: 44 Year
  Sex: Female

DRUGS (6)
  1. LITHIUM [Concomitant]
  2. MANGANESE [Concomitant]
  3. TOPIRAMATE [Suspect]
     Dates: start: 20080201, end: 20080301
  4. TOPIRAMATE [Suspect]
     Dosage: 100 MG (100 MG, 1 IN 1 D);
     Dates: start: 20080301, end: 20081101
  5. PROPRANOLOL HYDROCHLORIDE [Suspect]
  6. ETHINYLESTRADIOL W/GESTODENE [Concomitant]

REACTIONS (2)
  - SOCIAL AVOIDANT BEHAVIOUR [None]
  - GRANULOMA ANNULARE [None]
